FAERS Safety Report 6036490-0 (Version None)
Quarter: 2009Q1

REPORT INFORMATION
  Report Type: 
  Country: None (occurrence: None)
  Receive Date: 20090112
  Receipt Date: 20081231
  Transmission Date: 20090719
  Serious: Yes (Other)
  Sender: FDA-Public Use
  Company Number: A-CH2008-23233

PATIENT
  Age: 16 Year
  Sex: Female

DRUGS (2)
  1. TRACLEER [Suspect]
     Indication: PULMONARY ARTERIAL HYPERTENSION
     Dosage: 62.5 MG, BID, ORAL ; 31.25 MG, BID, ORAL
     Route: 048
     Dates: start: 20060901, end: 20061001
  2. TRACLEER [Suspect]
     Indication: PULMONARY ARTERIAL HYPERTENSION
     Dosage: 62.5 MG, BID, ORAL ; 31.25 MG, BID, ORAL
     Route: 048
     Dates: start: 20061001, end: 20061001

REACTIONS (2)
  - NAUSEA [None]
  - VOMITING [None]
